FAERS Safety Report 8161068-2 (Version None)
Quarter: 2012Q1

REPORT INFORMATION
  Report Type: 
  Country: None (occurrence: None)
  Receive Date: 20120224
  Receipt Date: 20120214
  Transmission Date: 20120608
  Serious: Yes (Hospitalization)
  Sender: FDA-Public Use
  Company Number: NO-BRISTOL-MYERS SQUIBB COMPANY-16400871

PATIENT
  Age: 73 Year
  Sex: Female

DRUGS (3)
  1. DIOVAN [Suspect]
     Route: 048
     Dates: start: 20110501
  2. METFORMIN HCL [Suspect]
     Route: 048
     Dates: start: 20110501
  3. GENTAMICIN [Suspect]
     Route: 051
     Dates: start: 20110501

REACTIONS (1)
  - RENAL FAILURE [None]
